FAERS Safety Report 5971176-X (Version None)
Quarter: 2008Q4

REPORT INFORMATION
  Report Type: 
  Country: None (occurrence: None)
  Receive Date: 20081128
  Receipt Date: 20081126
  Transmission Date: 20090506
  Serious: Yes (Other)
  Sender: FDA-Public Use
  Company Number: DE-JNJFOC-20081106100

PATIENT
  Age: 77 Year
  Sex: Male

DRUGS (9)
  1. TAVANIC [Suspect]
     Indication: BRONCHOPNEUMONIA
     Dosage: FILM COATED TABLETS
     Route: 048
  2. CODEINE SUL TAB [Concomitant]
     Indication: COUGH
     Route: 065
  3. NITRENDIPIN [Concomitant]
     Indication: HYPERTENSION
     Route: 065
  4. EBRANTIL [Concomitant]
     Indication: HYPERTENSION
     Route: 065
  5. MOXONIDIN [Concomitant]
     Indication: HYPERTENSION
     Route: 065
  6. METOPROLOL TARTRATE [Concomitant]
     Indication: HYPERTENSION
     Route: 065
  7. ALLOPURINOL [Concomitant]
     Indication: HYPERURICAEMIA
     Route: 065
  8. XIPAMID [Concomitant]
     Indication: HYPERTENSION
     Route: 065
  9. PROVAS [Concomitant]
     Indication: HYPERTENSION
     Route: 065

REACTIONS (3)
  - ERYTHEMA [None]
  - PAIN IN EXTREMITY [None]
  - PARALYSIS [None]
